FAERS Safety Report 6401213-X (Version None)
Quarter: 2009Q4

REPORT INFORMATION
  Report Type: 
  Country: None (occurrence: None)
  Receive Date: 20091015
  Receipt Date: 20091006
  Transmission Date: 20100525
  Serious: Yes (Other)
  Sender: FDA-Public Use
  Company Number: US-ROCHE-660916

PATIENT
  Age: 70 Year
  Sex: Female

DRUGS (12)
  1. BONIVA [Suspect]
     Indication: OSTEOPOROSIS
     Dosage: FORM: PREFILLED SYRINGE
     Route: 042
     Dates: start: 20081202
  2. SINGULAIR [Suspect]
     Indication: ASTHMA
     Route: 065
  3. MAGNESIUM OROTATE [Concomitant]
  4. CALCIUM [Concomitant]
  5. VITAMIN D3 [Concomitant]
  6. ELMIRON [Concomitant]
  7. DARVOCET [Concomitant]
  8. SIMVASTATIN [Concomitant]
  9. LEVOXYL [Concomitant]
  10. METOPROLOL [Concomitant]
  11. DIOVAN [Concomitant]
  12. ZADITOR [Concomitant]

REACTIONS (7)
  - ASTHMA [None]
  - BACK PAIN [None]
  - BLEPHARITIS [None]
  - BONE PAIN [None]
  - MUSCULOSKELETAL CHEST PAIN [None]
  - PARAESTHESIA [None]
  - RASH PAPULAR [None]
